FAERS Safety Report 10417680 (Version 3)
Quarter: 2014Q3

REPORT INFORMATION
  Report Type: Spontaneous
  Country: JP (occurrence: JP)
  Receive Date: 20140829
  Receipt Date: 20140908
  Transmission Date: 20150326
  Serious: Yes (Other)
  Sender: FDA-Public Use
  Company Number: PHHY2014JP064027

PATIENT
  Age: 73 Year
  Sex: Female
  Weight: 62 kg

DRUGS (8)
  1. TAXOL [Concomitant]
     Active Substance: PACLITAXEL
     Dosage: 120 MG, UNK
     Route: 041
     Dates: start: 20130925, end: 20131203
  2. HERCEPTIN [Suspect]
     Active Substance: TRASTUZUMAB
     Indication: BREAST CANCER
     Dosage: 390 MG, DAILY
     Route: 041
     Dates: start: 20130925
  3. EPADEL-S [Concomitant]
     Active Substance: ETHYL ICOSAPENTATE\ICOSAPENT
     Indication: DYSLIPIDAEMIA
     Dosage: 1200 MG, UNK
     Route: 048
     Dates: start: 2009
  4. FEMARA [Suspect]
     Active Substance: LETROZOLE
     Indication: BREAST CANCER
     Dosage: 2.5 MG, DAILY
     Route: 048
     Dates: start: 20140311
  5. METHYCOBAL [Suspect]
     Active Substance: METHYLCOBALAMIN
     Indication: NEUROPATHY PERIPHERAL
     Dosage: 1500 UG, DAILY
     Route: 048
     Dates: start: 20131126
  6. ISOTONIC SODIUM CHLORIDE SOLUTION [Concomitant]
     Active Substance: SODIUM CHLORIDE
     Indication: BREAST CANCER
     Dosage: UNK UKN, UNK
     Route: 042
     Dates: start: 20130925
  7. BUFFERIN                           /01519201/ [Concomitant]
     Dosage: 81 MG, UNK
     Route: 048
     Dates: start: 2009
  8. LIPITOR [Concomitant]
     Active Substance: ATORVASTATIN CALCIUM
     Indication: DYSLIPIDAEMIA
     Dosage: 10 MG, UNK
     Route: 048
     Dates: start: 2009

REACTIONS (7)
  - Urinary tract infection [Recovering/Resolving]
  - Pollakiuria [Unknown]
  - Urinary retention [Unknown]
  - Urine abnormality [Not Recovered/Not Resolved]
  - Micturition disorder [Unknown]
  - Cystitis [Not Recovered/Not Resolved]
  - Haematuria [Unknown]

NARRATIVE: CASE EVENT DATE: 20140401
